FAERS Safety Report 6289429-7 (Version None)
Quarter: 2009Q3

REPORT INFORMATION
  Report Type: 
  Country: None (occurrence: None)
  Receive Date: 20090730
  Receipt Date: 20090724
  Transmission Date: 20100115
  Serious: Yes (Hospitalization, Other)
  Sender: FDA-Public Use
  Company Number: FR-BRISTOL-MYERS SQUIBB COMPANY-14715841

PATIENT
  Age: 39 Year
  Sex: Male

DRUGS (6)
  1. STAVUDINE [Suspect]
     Indication: HIV INFECTION
     Dates: start: 19980101
  2. STAVUDINE [Suspect]
     Indication: HEPATITIS C
     Dates: start: 19980101
  3. LAMIVUDINE [Suspect]
     Indication: HIV INFECTION
     Dates: start: 19980101
  4. LAMIVUDINE [Suspect]
     Indication: HEPATITIS C
     Dates: start: 19980101
  5. NELFINAVIR [Suspect]
     Indication: HIV INFECTION
     Dates: start: 19980101
  6. NELFINAVIR [Suspect]
     Indication: HEPATITIS C
     Dates: start: 19980101

REACTIONS (1)
  - ENCEPHALITIS [None]
